FAERS Safety Report 4550938-X (Version None)
Quarter: 2004Q4

REPORT INFORMATION
  Report Type: 
  Country: None (occurrence: None)
  Receive Date: 20041217
  Receipt Date: 20040818
  Transmission Date: 20050328
  Serious: No
  Sender: FDA-Public Use
  Company Number: 2004-BP-07074BP(0)

PATIENT
  Age: 63 Year
  Sex: Male

DRUGS (6)
  1. SPIRIVA [Suspect]
     Indication: CHRONIC OBSTRUCTIVE AIRWAYS DISEASE
     Dosage: 18 MCG (18MCG, QD), IH
     Route: 055
     Dates: start: 20040618
  2. ALBUTEROL [Concomitant]
  3. COMBIVENT [Concomitant]
  4. PEPCID (FAMOTIDINE0 [Concomitant]
  5. ACCUPRIL [Concomitant]
  6. CARDIZEM CD [Concomitant]

REACTIONS (1)
  - DYSPNOEA [None]
